FAERS Safety Report 5088481-4 (Version None)
Quarter: 2006Q3

REPORT INFORMATION
  Report Type: 
  Country: None (occurrence: None)
  Receive Date: 20060823
  Receipt Date: 20060823
  Transmission Date: 20061208
  Serious: No
  Sender: FDA-Public Use
  Company Number: None

PATIENT
  Sex: Female
  Weight: 47.6277 kg

DRUGS (1)
  1. LISTERINE WHITENING PREBRUSH RINSE [Suspect]
     Indication: DENTAL TREATMENT
     Dosage: 15 ML ONCE/WEEKLY  4 TIMES
     Dates: start: 20060601, end: 20060629

REACTIONS (1)
  - GINGIVAL DISCOLOURATION [None]
